FAERS Safety Report 8823135 (Version 1)
Quarter: 2012Q4

REPORT INFORMATION
  Report Type: 
  Country: RO (occurrence: RO)
  Receive Date: 20121003
  Receipt Date: 20121003
  Transmission Date: 20130627
  Serious: Yes (Other)
  Sender: FDA-Public Use
  Company Number: RO-ROCHE-1139936

PATIENT
  Age: 47 Year
  Sex: Male

DRUGS (5)
  1. BEVACIZUMAB [Suspect]
     Indication: METASTASES TO CENTRAL NERVOUS SYSTEM
     Route: 065
     Dates: start: 20090201
  2. ERLOTINIB [Suspect]
     Indication: METASTASES TO CENTRAL NERVOUS SYSTEM
     Route: 065
     Dates: start: 201008, end: 201209
  3. DOCETAXEL [Suspect]
     Indication: METASTASES TO CENTRAL NERVOUS SYSTEM
     Route: 065
     Dates: end: 201203
  4. PACLITAXEL [Concomitant]
  5. CARBOPLATIN [Concomitant]

REACTIONS (5)
  - Disease progression [Not Recovered/Not Resolved]
  - Metastases to lung [Not Recovered/Not Resolved]
  - Haematotoxicity [Recovered/Resolved]
  - Neurotoxicity [Recovered/Resolved]
  - Metastases to abdominal cavity [Not Recovered/Not Resolved]
